FAERS Safety Report 9938801 (Version 2)
Quarter: 2014Q1

REPORT INFORMATION
  Report Type: Spontaneous
  Country: PR (occurrence: PR)
  Receive Date: 20140303
  Receipt Date: 20140303
  Transmission Date: 20141002
  Serious: No
  Sender: FDA-Public Use
  Company Number: PR-ABBVIE-12P-131-1011850-00

PATIENT
  Age: 40 Year
  Sex: Male

DRUGS (5)
  1. HUMIRA [Suspect]
     Indication: ANKYLOSING SPONDYLITIS
     Route: 058
     Dates: end: 201211
  2. HUMIRA [Suspect]
     Route: 058
     Dates: start: 20121201
  3. KLONOPIN [Concomitant]
     Indication: TREMOR
  4. NEURONTIN [Concomitant]
     Indication: TREMOR
  5. CYMBALTA [Concomitant]
     Indication: ANXIETY

REACTIONS (4)
  - Dengue fever [Recovered/Resolved]
  - Platelet count decreased [Recovered/Resolved]
  - Immunodeficiency [Recovered/Resolved]
  - Hypertension [Unknown]
